FAERS Safety Report 9979820 (Version 1)
Quarter: 2014Q1

REPORT INFORMATION
  Report Type: Spontaneous
  Country: US (occurrence: US)
  Receive Date: 20140307
  Receipt Date: 20140307
  Transmission Date: 20141002
  Serious: Yes (Life-Threatening, Hospitalization)
  Sender: FDA-Public Use
  Company Number: US-INDICUS PHARMA-000242

PATIENT
  Age: 59 Year
  Sex: Male

DRUGS (4)
  1. METFORMIN [Suspect]
     Dosage: APPROXIMATELY INGESTED?60 METFORMIN 500-MG TABLETS (30 G)
  2. AMLODIPINE [Suspect]
     Indication: PRODUCT USED FOR UNKNOWN INDICATION
     Dosage: APPROXIMATELY INGESTED?30 AMLODIPINE 10-MG TABLETS (300 MG)
  3. LISINOPRIL [Suspect]
     Dosage: APPROXIMATELY INGESTED?30 LISINOPRIL 10-MG TABLETS (300 MG)
  4. SIMVASTATIN [Suspect]
     Dosage: UNKNOWN QUANTITY OF SIMVASTATIN 40-MG TABLETS

REACTIONS (7)
  - Suicide attempt [Unknown]
  - Hypoglycaemia [Unknown]
  - Bradycardia [Unknown]
  - Lactic acidosis [Unknown]
  - Renal failure acute [Recovering/Resolving]
  - Shock [Unknown]
  - Intentional overdose [Unknown]
